FAERS Safety Report 4842598-5 (Version None)
Quarter: 2005Q4

REPORT INFORMATION
  Report Type: 
  Country: None (occurrence: None)
  Receive Date: 20051201
  Receipt Date: 20040921
  Transmission Date: 20060501
  Serious: Yes (Hospitalization, Congenital Anomaly)
  Sender: FDA-Public Use
  Company Number: SE-GLAXOSMITHKLINE-B0346821B

PATIENT
  Sex: Male

DRUGS (1)
  1. LAMICTAL [Suspect]
     Indication: EPILEPSY
     Dates: start: 20020101

REACTIONS (7)
  - ATRIAL SEPTAL DEFECT [None]
  - CARDIAC DISORDER [None]
  - CONGENITAL ANOMALY [None]
  - DRUG EXPOSURE DURING PREGNANCY [None]
  - HEART DISEASE CONGENITAL [None]
  - TRISOMY 21 [None]
  - VENTRICULAR SEPTAL DEFECT [None]
